APPROVED DRUG PRODUCT: PROBENECID
Active Ingredient: PROBENECID
Strength: 500MG
Dosage Form/Route: TABLET;ORAL
Application: A084211 | Product #002
Applicant: AUROBINDO PHARMA USA INC
Approved: Approved Prior to Jan 1, 1982 | RLD: No | RS: No | Type: DISCN